FAERS Safety Report 11116056 (Version 1)
Quarter: 2015Q2

REPORT INFORMATION
  Report Type: Spontaneous
  Country: US (occurrence: None)
  Receive Date: 20150505
  Receipt Date: 20150505
  Transmission Date: 20150821
  Serious: No
  Sender: FDA-Public Use
  Company Number: 2015FE00859

PATIENT
  Age: 74 Year
  Sex: Female
  Weight: 63 kg

DRUGS (10)
  1. LOSARTAN (LOSARTAN) [Concomitant]
     Active Substance: LOSARTAN
  2. CENTRUM SILVER /02363801/ (ASCORBIC ACID, BIOTIN, CALCIUM, CALCIUM PANTOTHENATE, CHLORINE, CHROMIUM, COLECALCIFEROL, COPPER, CYANOCOBALAMIN, FOLIC ACID, IODINE, IRON, MAGNESIUM, MANGANESE, MOLYBDENUM, NICKEL, NICOTINAMIDE, PHOSPHORUS, PHYTOMENADIONE, POTASSIUM, PYRIDOXINE HYDROCHLORIDE, RETINOL, RIBOFLAVIN, SELENIUM, SILICON DIOXIDE, THIAMINE HYDROCHLORIDE, TOCOPHEROL, VANADIUM, ZINC) [Concomitant]
  3. RANITIDINE [Concomitant]
     Active Substance: RANITIDINE\RANITIDINE HYDROCHLORIDE
  4. PREPOPIK [Suspect]
     Active Substance: ANHYDROUS CITRIC ACID\MAGNESIUM OXIDE\SODIUM PICOSULFATE
     Indication: COLONOSCOPY
     Dosage: UNK, ONCE/SINGLE, ORAL
     Route: 048
     Dates: start: 20150309, end: 20150309
  5. CALTRATE /00944201/ (CALCIUM CARBONATE, COLECALCIFEROL) [Concomitant]
  6. TWO FIBER () [Suspect]
     Active Substance: UNSPECIFIED INGREDIENT
  7. GABAPENTIN (GABAPENTIN) [Concomitant]
     Active Substance: GABAPENTIN
  8. CRESTOR [Concomitant]
     Active Substance: ROSUVASTATIN CALCIUM
  9. ESTROVEN (BORON, CALCIUM, CIMICIFUGA RACEMOSA EXTRACT, FOLIC ACID, GLYCINE MAX EXTRACT, MAGNOLIA OFFICINALIS, NICOTINIC ACID, PYRIDOXINE HYDROCHLORIDE, RIBOFLAVIN, SELENIUM, THIAMINE, TOCOPHEROL, VITAMIN B12NOS) [Concomitant]
  10. MELOXICAM (MELOXICAM) [Concomitant]
     Active Substance: MELOXICAM

REACTIONS (3)
  - Malaise [None]
  - Vomiting [None]
  - Gastrooesophageal reflux disease [None]

NARRATIVE: CASE EVENT DATE: 20150309
